FAERS Safety Report 9932151 (Version 3)
Quarter: 2014Q2

REPORT INFORMATION
  Report Type: Spontaneous
  Country: AU (occurrence: None)
  Receive Date: 20140226
  Receipt Date: 20140528
  Transmission Date: 20141212
  Serious: Yes (Hospitalization, Other)
  Sender: FDA-Public Use
  Company Number: AUR-APL-2014-01944

PATIENT
  Age: 51 Year
  Sex: 0
  Weight: 70 kg

DRUGS (15)
  1. QUETIAPINE (QUETIAPINE) [Suspect]
     Indication: PRODUCT USED FOR UNKNOWN INDICATION
     Dosage: 25 MG, 1 D, UNKNOWN STOPPED
  2. ATACAND PLUS [Suspect]
     Indication: PRODUCT USED FOR UNKNOWN INDICATION
     Dosage: 32/12.5 MG (1 DOSAGE FROMS, 1 D) UNKNOWN
     Dates: end: 201209
  3. E-MYCIN [Suspect]
     Indication: PRODUCT USED FOR UNKNOWN INDICATION
     Dates: start: 20120828, end: 201209
  4. EUTROXSIG [Concomitant]
     Indication: PRODUCT USED FOR UNKNOWN INDICATION
  5. KALMA (ALPRAZOLAM) [Suspect]
     Indication: PRODUCT USED FOR UNKNOWN INDICATION
     Dates: end: 201209
  6. LITHIUM CARBONATE (LITHIUM CARBONATE) [Suspect]
     Indication: PRODUCT USED FOR UNKNOWN INDICATION
     Dates: end: 201209
  7. RHINOCORT [Suspect]
     Indication: PRODUCT USED FOR UNKNOWN INDICATION
     Dosage: 6 DOSAGES FORMS, 1D, INHALATION
     Route: 055
     Dates: end: 201209
  8. SOLONE [Suspect]
     Indication: PRODUCT USED FOR UNKNOWN INDICATION
     Dates: start: 20120828, end: 201209
  9. SYMBICORT TURBOHALER [Concomitant]
     Dosage: 2 DOSAGES FORMS, 1 D, INHALATION
  10. YASMIN [Suspect]
     Indication: PRODUCT USED FOR UNKNOWN INDICATION
     Dates: end: 201209
  11. AQUINAFIL [Suspect]
     Indication: PRODUCT USED FOR UNKNOWN INDICATION
     Dates: end: 201209
  12. AVANZA SOLTAB (MIRTAZAPINE) [Concomitant]
  13. PRISTIQ (DESVENLAFAXINE SUCCINATE) [Suspect]
     Indication: PRODUCT USED FOR UNKNOWN INDICATION
  14. PREDNISOLONE (PREDNISOLONE) [Suspect]
     Indication: PRODUCT USED FOR UNKNOWN INDICATION
     Dates: end: 201209
  15. EUTROXSIG (LEVOTHYROXINE SODIUM) [Concomitant]

REACTIONS (9)
  - Toxicity to various agents [None]
  - Drug interaction [None]
  - Electrocardiogram QT prolonged [None]
  - Hypokalaemia [None]
  - Antipsychotic drug level above therapeutic [None]
  - Blood creatinine increased [None]
  - Cardiac arrest [None]
  - Hypomagnesaemia [None]
  - Renal failure acute [None]
